FAERS Safety Report 9228895 (Version 1)
Quarter: 2013Q2

REPORT INFORMATION
  Report Type: Spontaneous
  Country: CA (occurrence: CA)
  Receive Date: 20130412
  Receipt Date: 20130412
  Transmission Date: 20140414
  Serious: Yes (Other)
  Sender: FDA-Public Use
  Company Number: CA-PURDUE-CAN-2013-0004025

PATIENT
  Age: 82 Year
  Sex: Female

DRUGS (1)
  1. BUTRANS TRANSDERMAL PATCH - 5 MCG/HR [Suspect]
     Indication: PAIN
     Dosage: 5 MCG/HR, UNK
     Route: 065

REACTIONS (2)
  - Pleural effusion [Unknown]
  - Dyspnoea [Unknown]
